FAERS Safety Report 8621896-3 (Version None)
Quarter: 2012Q3

REPORT INFORMATION
  Report Type: 
  Country: None (occurrence: None)
  Receive Date: 20120822
  Receipt Date: 20120822
  Transmission Date: 20120928
  Serious: Yes (Hospitalization)
  Sender: FDA-Public Use
  Company Number: None

PATIENT
  Sex: Female
  Weight: 67.3 kg

DRUGS (5)
  1. ... [Concomitant]
     Dosage: 664 MG
  2. FLUOROURACIL [Suspect]
     Dosage: 7392 MG
  3. LEUCOVORIN CALCIUM [Suspect]
     Dosage: 1408 MG
  4. ELOXATIN [Suspect]
     Dosage: 0 MG
  5. AVASTIN [Suspect]
     Dosage: 664 MG

REACTIONS (4)
  - HYPERTENSION [None]
  - VOMITING [None]
  - DRUG DOSE OMISSION [None]
  - HEADACHE [None]
